FAERS Safety Report 8461819-3 (Version None)
Quarter: 2012Q2

REPORT INFORMATION
  Report Type: 
  Country: None (occurrence: None)
  Receive Date: 20120618
  Receipt Date: 20120611
  Transmission Date: 20120825
  Serious: Yes (Other)
  Sender: FDA-Public Use
  Company Number: 2012MA007320

PATIENT
  Age: 46 Year
  Sex: Male

DRUGS (1)
  1. NAPROXEN [Suspect]

REACTIONS (1)
  - VISION BLURRED [None]
